FAERS Safety Report 12677529 (Version 1)
Quarter: 2016Q3

REPORT INFORMATION
  Report Type: Report from Study
  Country: BR (occurrence: BR)
  Receive Date: 20160823
  Receipt Date: 20160823
  Transmission Date: 20161109
  Serious: Yes (Other)
  Sender: FDA-Public Use
  Company Number: BR-JNJFOC-20160616022

PATIENT
  Age: 66 Year
  Sex: Male

DRUGS (2)
  1. REMICADE [Suspect]
     Active Substance: INFLIXIMAB
     Indication: RHEUMATOID ARTHRITIS
     Route: 042
     Dates: start: 20160503
  2. REMICADE [Suspect]
     Active Substance: INFLIXIMAB
     Indication: RHEUMATOID ARTHRITIS
     Route: 042
     Dates: start: 20160525

REACTIONS (4)
  - Influenza [Recovered/Resolved]
  - Rheumatoid arthritis [Recovered/Resolved]
  - Headache [Unknown]
  - Arthritis infective [Unknown]

NARRATIVE: CASE EVENT DATE: 201605
